FAERS Safety Report 8118351-6 (Version None)
Quarter: 2012Q1

REPORT INFORMATION
  Report Type: 
  Country: None (occurrence: None)
  Receive Date: 20120207
  Receipt Date: 20120201
  Transmission Date: 20120608
  Serious: Yes (Other)
  Sender: FDA-Public Use
  Company Number: GB-PFIZER INC-2012028598

PATIENT
  Age: 22 Year
  Sex: Female
  Weight: 65 kg

DRUGS (2)
  1. CLINDAMYCIN PHOSPHATE [Suspect]
     Dosage: 150 MG, UNK
     Route: 048
     Dates: start: 20111206, end: 20111226
  2. WARFARIN [Concomitant]
     Indication: PULMONARY EMBOLISM
     Dosage: UNK

REACTIONS (1)
  - AMNESIA [None]
